FAERS Safety Report 10684173 (Version 1)
Quarter: 2014Q4

REPORT INFORMATION
  Report Type: Spontaneous
  Country: US (occurrence: US)
  Receive Date: 20141231
  Receipt Date: 20141231
  Transmission Date: 20150529
  Serious: Yes (Hospitalization, Other)
  Sender: FDA-Public Use
  Company Number: US-PFIZER INC-2014357435

PATIENT
  Age: 67 Year
  Sex: Male

DRUGS (3)
  1. NORCO [Suspect]
     Active Substance: ACETAMINOPHEN\HYDROCODONE BITARTRATE
  2. PREDNISONE. [Suspect]
     Active Substance: PREDNISONE
  3. GABAPENTIN. [Suspect]
     Active Substance: GABAPENTIN

REACTIONS (3)
  - Gastrointestinal disorder [Unknown]
  - Suicidal ideation [Unknown]
  - Herpes zoster [Unknown]

NARRATIVE: CASE EVENT DATE: 201407
